FAERS Safety Report 11768883 (Version 3)
Quarter: 2015Q4

REPORT INFORMATION
  Report Type: Spontaneous
  Country: UA (occurrence: UA)
  Receive Date: 20151123
  Receipt Date: 20151228
  Transmission Date: 20160304
  Serious: Yes (Death, Other)
  Sender: FDA-Public Use
  Company Number: UA-PFIZER INC-2015389241

PATIENT
  Age: 64 Year
  Sex: Female

DRUGS (6)
  1. TAXOL [Concomitant]
     Active Substance: PACLITAXEL
     Indication: CERVIX CARCINOMA
     Dosage: 270 MG, CYCLIC (ONCE X THREE WEEKS), 3 CYCLES
     Dates: start: 20150211
  2. CISPLATIN. [Concomitant]
     Active Substance: CISPLATIN
     Indication: CERVIX CARCINOMA
     Dosage: 150 MG, CYCLIC (ONCE X THREE WEEKS), 3 CYCLES
     Dates: start: 20140813
  3. LYRICA [Suspect]
     Active Substance: PREGABALIN
     Dosage: 150 MG, DAILY
     Route: 048
     Dates: start: 201503, end: 201503
  4. CARBOPLATIN. [Concomitant]
     Active Substance: CARBOPLATIN
     Dosage: UNK, CYCLIC 3 CYCLES
     Dates: start: 20150211
  5. LYRICA [Suspect]
     Active Substance: PREGABALIN
     Indication: POLYNEUROPATHY
     Dosage: 75 MG, DAILY
     Route: 048
     Dates: start: 201503, end: 201503
  6. FLUOROURACIL. [Concomitant]
     Active Substance: FLUOROURACIL
     Dosage: UNK, CYCLIC 3 CYCLES
     Dates: start: 20140813

REACTIONS (5)
  - Condition aggravated [Recovered/Resolved]
  - Cervix carcinoma [Fatal]
  - Disease progression [Fatal]
  - Somnolence [Recovered/Resolved]
  - Urinary incontinence [Recovered/Resolved]

NARRATIVE: CASE EVENT DATE: 201503
